FAERS Safety Report 8943296 (Version 2)
Quarter: 2013Q1

REPORT INFORMATION
  Report Type: Spontaneous
  Country: BR (occurrence: BR)
  Receive Date: 20121204
  Receipt Date: 20130124
  Transmission Date: 20140127
  Serious: Yes (Other)
  Sender: FDA-Public Use
  Company Number: BR-AMGEN-BRACT2012047089

PATIENT
  Age: 46 Year
  Sex: Female
  Weight: 55 kg

DRUGS (5)
  1. ENBREL [Suspect]
     Indication: RHEUMATOID ARTHRITIS
     Dosage: 50 MG, ONCE WEEKLY
     Route: 058
     Dates: start: 200911, end: 201211
  2. ARAVA [Concomitant]
     Dosage: 20 MG, ALTERNATE DAY
     Route: 048
  3. ENALAPRIL [Concomitant]
     Dosage: 20 MG, 1X/DAY
     Dates: start: 2011
  4. ATENOLOL [Concomitant]
     Dosage: 5 MG, 1X/DAY
     Dates: start: 2012
  5. LOSARTAN [Concomitant]
     Indication: HYPERTENSION
     Dosage: UNK

REACTIONS (11)
  - Dengue fever [Unknown]
  - Arthralgia [Recovered/Resolved]
  - Myalgia [Recovered/Resolved]
  - Pyrexia [Recovered/Resolved]
  - Osteoarthritis [Recovered/Resolved]
  - Limb injury [Unknown]
  - Post procedural complication [Unknown]
  - Poor peripheral circulation [Unknown]
  - Thrombocytopenia [Recovered/Resolved]
  - Needle issue [Unknown]
  - Application site pain [Unknown]
